FAERS Safety Report 21644843 (Version 1)
Quarter: 2022Q4

REPORT INFORMATION
  Report Type: Spontaneous
  Country: DE (occurrence: DE)
  Receive Date: 20221125
  Receipt Date: 20221125
  Transmission Date: 20230112
  Serious: Yes (Death, Other)
  Sender: FDA-Public Use
  Company Number: DE-INCYTE CORPORATION-2022IN011351

PATIENT
  Sex: Male

DRUGS (2)
  1. ICLUSIG [Suspect]
     Active Substance: PONATINIB
     Indication: Chronic myeloid leukaemia
     Dosage: 15 MILLIGRAM, QD
     Route: 065
     Dates: start: 201808, end: 201904
  2. ICLUSIG [Suspect]
     Active Substance: PONATINIB
     Dosage: 30 MILLIGRAM, QD
     Route: 065
     Dates: end: 202104

REACTIONS (5)
  - Chronic myeloid leukaemia [Fatal]
  - Blast cell crisis [Fatal]
  - Disease progression [Fatal]
  - Depression suicidal [Unknown]
  - Treatment noncompliance [Unknown]
